FAERS Safety Report 13399709 (Version 1)
Quarter: 2017Q2

REPORT INFORMATION
  Report Type: Spontaneous
  Country: US (occurrence: US)
  Receive Date: 20170404
  Receipt Date: 20170404
  Transmission Date: 20170830
  Serious: No
  Sender: FDA-Public Use
  Company Number: None

PATIENT
  Sex: Male

DRUGS (2)
  1. ALLOPURINOL SODIUM. [Suspect]
     Active Substance: ALLOPURINOL SODIUM
  2. ATENOLOL TABLETS [Suspect]
     Active Substance: ATENOLOL

REACTIONS (4)
  - Dizziness [None]
  - Blood pressure increased [None]
  - Product commingling [None]
  - Wrong drug administered [None]

NARRATIVE: CASE EVENT DATE: 2017
